FAERS Safety Report 25893298 (Version 1)
Quarter: 2025Q4

REPORT INFORMATION
  Report Type: Spontaneous
  Country: US (occurrence: US)
  Receive Date: 20251008
  Receipt Date: 20251008
  Transmission Date: 20260119
  Serious: No
  Sender: ELI LILLY AND COMPANY
  Company Number: US-ELI_LILLY_AND_COMPANY-US202510003680

PATIENT
  Age: 81 Year
  Sex: Female

DRUGS (3)
  1. ZEPBOUND [Suspect]
     Active Substance: TIRZEPATIDE
     Indication: Weight control
     Dosage: 2.5 MG, UNKNOWN
     Route: 065
     Dates: start: 20250920
  2. AMOXICILLIN [Suspect]
     Active Substance: AMOXICILLIN
     Indication: Oral surgery
     Dosage: UNK UNK, UNKNOWN
     Route: 065
  3. AUGMENTIN [Suspect]
     Active Substance: AMOXICILLIN\CLAVULANATE POTASSIUM
     Indication: Oral surgery
     Dosage: UNK UNK, UNKNOWN
     Route: 065

REACTIONS (6)
  - Hiccups [Unknown]
  - Decreased appetite [Unknown]
  - Oesophageal spasm [Unknown]
  - Nausea [Not Recovered/Not Resolved]
  - Fatigue [Unknown]
  - Abdominal pain lower [Unknown]
